FAERS Safety Report 18338274 (Version 1)
Quarter: 2020Q3

REPORT INFORMATION
  Report Type: Spontaneous
  Country: US (occurrence: US)
  Receive Date: 20200927
  Receipt Date: 20200927
  Transmission Date: 20201103
  Serious: Yes (Other)
  Sender: FDA-Public Use
  Company Number: None

PATIENT
  Age: 9 Decade
  Sex: Male

DRUGS (2)
  1. RITONAVIR. [Suspect]
     Active Substance: RITONAVIR
     Indication: COVID-19
     Dosage: DOSE: 400MG/100MG
     Dates: start: 2020
  2. LOPINAVIR [Suspect]
     Active Substance: LOPINAVIR
     Indication: COVID-19 PNEUMONIA
     Dosage: ?          OTHER DOSE:400/100MG;?
     Dates: start: 2020

REACTIONS (5)
  - Diarrhoea [None]
  - Decreased appetite [None]
  - Product use in unapproved indication [None]
  - Hyponatraemia [None]
  - Lymphopenia [None]
